FAERS Safety Report 4805096-0 (Version None)
Quarter: 2005Q4

REPORT INFORMATION
  Report Type: 
  Country: None (occurrence: None)
  Receive Date: 20051017
  Receipt Date: 20050929
  Transmission Date: 20060501
  Serious: Yes (Congenital Anomaly)
  Sender: FDA-Public Use
  Company Number: 230001L05CAN

PATIENT

DRUGS (2)
  1. REBIF [Suspect]
     Dosage: TRANSPLACENTAL
     Route: 064
  2. INTERFERON BETA [Suspect]
     Dosage: TRANSPLACENTAL
     Route: 064

REACTIONS (5)
  - ABORTION SPONTANEOUS [None]
  - DRUG EXPOSURE DURING PREGNANCY [None]
  - INTRA-UTERINE DEATH [None]
  - TRISOMY 21 [None]
  - X-LINKED CHROMOSOMAL DISORDER [None]
